FAERS Safety Report 6929556-1 (Version None)
Quarter: 2010Q3

REPORT INFORMATION
  Report Type: 
  Country: None (occurrence: None)
  Receive Date: 20100818
  Receipt Date: 20100809
  Transmission Date: 20110219
  Serious: Yes (Hospitalization, Other)
  Sender: FDA-Public Use
  Company Number: US-JNJFOC-20100803072

PATIENT
  Sex: Male
  Weight: 99.79 kg

DRUGS (10)
  1. TOPAMAX [Suspect]
     Indication: PRODUCT USED FOR UNKNOWN INDICATION
     Route: 065
  2. ADALIMUMAB [Suspect]
     Indication: RHEUMATOID ARTHRITIS
     Dosage: 40 MG/0.8 ML IN TWO DOSES.
     Route: 065
  3. PREDNICARBATE [Suspect]
     Indication: MIGRAINE
     Dosage: 25 MG, 6 IN 1 DAY
     Route: 065
  4. ISONIAZID [Suspect]
     Indication: TUBERCULIN TEST POSITIVE
     Route: 065
  5. METHOTREXATE [Suspect]
     Indication: RHEUMATOID ARTHRITIS
     Route: 065
  6. PLAVIX [Concomitant]
     Indication: BLOOD CHOLESTEROL INCREASED
     Route: 065
  7. PANTOPRAZOLE [Concomitant]
     Indication: PRODUCT USED FOR UNKNOWN INDICATION
     Route: 065
  8. BISELECT [Concomitant]
     Indication: HYPERTENSION
     Dosage: 2.5 MG ONCE A DAY
     Route: 065
  9. FOLIC ACID [Concomitant]
     Indication: PRODUCT USED FOR UNKNOWN INDICATION
     Route: 065
  10. SIMVASTATIN [Concomitant]
     Indication: BLOOD CHOLESTEROL INCREASED
     Route: 065

REACTIONS (5)
  - CORONARY ARTERY OCCLUSION [None]
  - FATIGUE [None]
  - MIGRAINE [None]
  - NAUSEA [None]
  - TUBERCULIN TEST POSITIVE [None]
